FAERS Safety Report 15095953 (Version 2)
Quarter: 2018Q3

REPORT INFORMATION
  Report Type: Spontaneous
  Country: US (occurrence: US)
  Receive Date: 20180702
  Receipt Date: 20180706
  Transmission Date: 20181010
  Serious: Yes (Other)
  Sender: FDA-Public Use
  Company Number: US-AUROBINDO-AUR-APL-2018-032670

PATIENT
  Age: 21 Year
  Sex: Male

DRUGS (1)
  1. EMTRICITABINE AND TENOFOVIR [Suspect]
     Active Substance: EMTRICITABINE\TENOFOVIR
     Indication: PROPHYLAXIS AGAINST HIV INFECTION
     Dosage: UNK
     Route: 065

REACTIONS (3)
  - Gonorrhoea [None]
  - Transaminases increased [Unknown]
  - Autoimmune hepatitis [Unknown]
